FAERS Safety Report 8975500 (Version 1)
Quarter: 2012Q4

REPORT INFORMATION
  Report Type: 
  Country: US (occurrence: US)
  Receive Date: 20121219
  Receipt Date: 20121219
  Transmission Date: 20130627
  Serious: No
  Sender: FDA-Public Use
  Company Number: US-PFIZER INC-2012320477

PATIENT
  Sex: Male
  Weight: 68.03 kg

DRUGS (3)
  1. CAVERJECT [Suspect]
     Indication: ERECTILE DYSFUNCTION
     Dosage: UNK, 1x/day
     Dates: start: 201210, end: 201212
  2. LIPITOR [Concomitant]
     Indication: HIGH CHOLESTEROL
     Dosage: 10 mg, 1x/day
  3. VIAGRA [Concomitant]
     Dosage: UNK

REACTIONS (2)
  - Penile curvature [Not Recovered/Not Resolved]
  - Penile swelling [Not Recovered/Not Resolved]
